FAERS Safety Report 23614783 (Version 3)
Quarter: 2024Q2

REPORT INFORMATION
  Report Type: Report from Study
  Country: US (occurrence: US)
  Receive Date: 20240311
  Receipt Date: 20240514
  Transmission Date: 20240716
  Serious: No
  Sender: FDA-Public Use
  Company Number: US-ACADIA PHARMACEUTICALS INC.-ACA-2024-TRF-000737

PATIENT
  Age: 2 Year
  Sex: Female

DRUGS (3)
  1. DAYBUE [Suspect]
     Active Substance: TROFINETIDE
     Indication: Intellectual disability
     Dosage: 25 MILLILITER, BID
     Route: 048
  2. DAYBUE [Suspect]
     Active Substance: TROFINETIDE
     Indication: Rett syndrome
     Dosage: 5 MILLILITER, BID
     Route: 048
  3. DAYBUE [Suspect]
     Active Substance: TROFINETIDE
     Dosage: 9 MILLILITER, BID
     Route: 048
     Dates: end: 20240416

REACTIONS (21)
  - Excessive eye blinking [Unknown]
  - Hypokinesia [Unknown]
  - Asthenia [Unknown]
  - Hypersomnia [Unknown]
  - Asthenia [Unknown]
  - Weight decreased [Unknown]
  - Irritability [Unknown]
  - Bacterial infection [Not Recovered/Not Resolved]
  - Viral infection [Not Recovered/Not Resolved]
  - Flatulence [Not Recovered/Not Resolved]
  - Irritability [Not Recovered/Not Resolved]
  - Rhinorrhoea [Not Recovered/Not Resolved]
  - Screaming [Not Recovered/Not Resolved]
  - Crying [Not Recovered/Not Resolved]
  - Underdose [Unknown]
  - Decreased appetite [Not Recovered/Not Resolved]
  - Nasopharyngitis [Unknown]
  - Pyrexia [Not Recovered/Not Resolved]
  - Nasopharyngitis [Not Recovered/Not Resolved]
  - Fatigue [Unknown]
  - Off label use [Not Recovered/Not Resolved]

NARRATIVE: CASE EVENT DATE: 20240201
